FAERS Safety Report 7029364-X (Version None)
Quarter: 2010Q4

REPORT INFORMATION
  Report Type: 
  Country: None (occurrence: None)
  Receive Date: 20101005
  Receipt Date: 20100928
  Transmission Date: 20110411
  Serious: Yes (Other)
  Sender: FDA-Public Use
  Company Number: US-US-EMD SERONO, INC.-7015219

PATIENT
  Sex: Female
  Weight: 64 kg

DRUGS (5)
  1. REBIF [Suspect]
     Indication: MULTIPLE SCLEROSIS
     Dates: start: 20100721, end: 20100801
  2. REBIF [Suspect]
     Route: 058
     Dates: start: 20100818, end: 20100101
  3. REBIF [Suspect]
     Route: 058
     Dates: start: 20100101, end: 20100928
  4. LISINOPRIL [Concomitant]
     Indication: HYPERTENSION
     Dates: start: 20100201, end: 20100901
  5. LISINOPRIL [Concomitant]
     Dates: start: 20100901

REACTIONS (9)
  - CHEST PAIN [None]
  - CORONARY ARTERY OCCLUSION [None]
  - FEELING HOT [None]
  - FLUSHING [None]
  - HYPERTENSION [None]
  - HYPOAESTHESIA [None]
  - INFLUENZA LIKE ILLNESS [None]
  - PAIN [None]
  - PALPITATIONS [None]
